FAERS Safety Report 23795088 (Version 1)
Quarter: 2024Q2

REPORT INFORMATION
  Report Type: Spontaneous
  Country: US (occurrence: US)
  Receive Date: 20240429
  Receipt Date: 20240429
  Transmission Date: 20240715
  Serious: No
  Sender: FDA-Public Use
  Company Number: US-SPECGX-T202302395

PATIENT
  Sex: Female

DRUGS (1)
  1. METHADONE [Suspect]
     Active Substance: METHADONE HYDROCHLORIDE
     Indication: Cystitis
     Dosage: ROUGHLY TAKES 1.25MG DOSES THROUGHOUT THE DAY FOLLOWING CUTTING/CRUSHING OF TABLETS
     Route: 065

REACTIONS (2)
  - Wrong technique in product usage process [Unknown]
  - Incorrect dose administered by product [Unknown]
